FAERS Safety Report 18185776 (Version 1)
Quarter: 2020Q3

REPORT INFORMATION
  Report Type: Spontaneous
  Country: DE (occurrence: DE)
  Receive Date: 20200824
  Receipt Date: 20200824
  Transmission Date: 20201103
  Serious: Yes (Other)
  Sender: FDA-Public Use
  Company Number: NVSC2020DE231479

PATIENT
  Age: 65 Year
  Sex: Male

DRUGS (2)
  1. TASIGNA [Suspect]
     Active Substance: NILOTINIB
     Indication: CHRONIC MYELOID LEUKAEMIA
     Dosage: UNK
     Route: 065
     Dates: start: 2012, end: 2015
  2. TASIGNA [Suspect]
     Active Substance: NILOTINIB
     Indication: PHILADELPHIA CHROMOSOME POSITIVE
     Dosage: UNK
     Route: 065

REACTIONS (3)
  - Myocardial infarction [Unknown]
  - Chest discomfort [Unknown]
  - Depression [Unknown]

NARRATIVE: CASE EVENT DATE: 2012
